FAERS Safety Report 10240901 (Version 1)
Quarter: 2014Q2

REPORT INFORMATION
  Report Type: Spontaneous
  Country: FR (occurrence: FR)
  Receive Date: 20140617
  Receipt Date: 20140617
  Transmission Date: 20141212
  Serious: Yes (Other)
  Sender: FDA-Public Use
  Company Number: FR-ROCHE-1419449

PATIENT
  Age: 53 Year
  Sex: Female

DRUGS (5)
  1. ROACTEMRA [Suspect]
     Indication: RHEUMATOID ARTHRITIS
     Route: 042
     Dates: start: 20100218, end: 20131120
  2. METOJECT [Concomitant]
  3. LEVOTHYROX [Concomitant]
  4. SPECIAFOLDINE [Concomitant]
  5. INEXIUM [Concomitant]

REACTIONS (1)
  - Colitis [Recovered/Resolved]
